FAERS Safety Report 8529561-8 (Version None)
Quarter: 2012Q3

REPORT INFORMATION
  Report Type: 
  Country: None (occurrence: None)
  Receive Date: 20120723
  Receipt Date: 20120712
  Transmission Date: 20120928
  Serious: Yes (Other)
  Sender: FDA-Public Use
  Company Number: IT-JNJFOC-20080403956

PATIENT

DRUGS (2)
  1. CLADRIBINE [Suspect]
     Indication: WALDENSTROM'S MACROGLOBULINAEMIA
     Dosage: FOR 5 CONSECUTIVE DAYS ADMINISTERED MONTHLY FOR 4 CYCLES
     Route: 058
  2. RITUXAN [Suspect]
     Indication: WALDENSTROM'S MACROGLOBULINAEMIA
     Dosage: ON DAY 1 ADMINISTERED MONTHLY FOR 4 CYCLES BY INFUSION
     Route: 065

REACTIONS (2)
  - NEUTROPENIA [None]
  - RESPIRATORY TRACT INFECTION [None]
